FAERS Safety Report 11302894 (Version 2)
Quarter: 2015Q3

REPORT INFORMATION
  Report Type: Spontaneous
  Country: US (occurrence: US)
  Receive Date: 20150723
  Receipt Date: 20150901
  Transmission Date: 20151125
  Serious: Yes (Hospitalization, Other)
  Sender: FDA-Public Use
  Company Number: US-ASTRAZENECA-2015SE69222

PATIENT
  Age: 19086 Day
  Sex: Male
  Weight: 135.6 kg

DRUGS (26)
  1. BYDUREON [Suspect]
     Active Substance: EXENATIDE
     Indication: TYPE 2 DIABETES MELLITUS
     Route: 058
     Dates: start: 20150707, end: 20150713
  2. LOSARTAN. [Concomitant]
     Active Substance: LOSARTAN
  3. TRADJENTA [Concomitant]
     Active Substance: LINAGLIPTIN
  4. ONETOUCH VERIO STRIPS [Concomitant]
  5. BRILINTA [Suspect]
     Active Substance: TICAGRELOR
     Route: 048
  6. OMEPRAZOLE. [Concomitant]
     Active Substance: OMEPRAZOLE
  7. XANAX [Concomitant]
     Active Substance: ALPRAZOLAM
  8. BYDUREON [Suspect]
     Active Substance: EXENATIDE
     Indication: TYPE 2 DIABETES MELLITUS
     Dosage: 2 MG 4 COUNT VIAL, 2 MG ONCE A WEEK
     Route: 058
     Dates: start: 20120605, end: 20150713
  9. BYETTA [Suspect]
     Active Substance: EXENATIDE
     Indication: TYPE 2 DIABETES MELLITUS
     Dosage: 25 MG/ML, 10 MCG BID
     Route: 058
  10. INSULIN [Concomitant]
     Active Substance: INSULIN NOS
  11. GLYBURIDE. [Concomitant]
     Active Substance: GLYBURIDE
     Indication: TYPE 2 DIABETES MELLITUS
     Dosage: UNK
     Route: 048
  12. CIALIS [Concomitant]
     Active Substance: TADALAFIL
  13. BYDUREON [Suspect]
     Active Substance: EXENATIDE
     Indication: TYPE 2 DIABETES MELLITUS
     Route: 058
     Dates: start: 20150708, end: 20150719
  14. BYETTA [Suspect]
     Active Substance: EXENATIDE
     Indication: TYPE 2 DIABETES MELLITUS
     Dosage: 25 MG/ML , 5 MCG TEO TIMES A DAY
     Route: 058
  15. HUMALOG [Concomitant]
     Active Substance: INSULIN LISPRO
  16. GLIMEPIRIDE. [Concomitant]
     Active Substance: GLIMEPIRIDE
     Indication: TYPE 2 DIABETES MELLITUS
     Dosage: UNK
     Route: 048
  17. LYRICA [Concomitant]
     Active Substance: PREGABALIN
     Indication: FIBROMYALGIA
     Route: 048
  18. BENICAR HCT [Concomitant]
     Active Substance: HYDROCHLOROTHIAZIDE\OLMESARTAN MEDOXOMIL
     Dosage: 20 MG -12.6 MG
  19. BYSTOLIC [Concomitant]
     Active Substance: NEBIVOLOL HYDROCHLORIDE
  20. METOPROLOL SUCCINATE ER [Concomitant]
     Active Substance: METOPROLOL SUCCINATE
  21. BYETTA [Suspect]
     Active Substance: EXENATIDE
     Indication: TYPE 2 DIABETES MELLITUS
     Dosage: 25 MG/ML , 5 MCG DAILY
     Route: 058
  22. TOUJEO [Suspect]
     Active Substance: INSULIN GLARGINE
     Route: 065
     Dates: start: 20150713
  23. ACTOPLUS MET [Concomitant]
     Active Substance: METFORMIN HYDROCHLORIDE\PIOGLITAZONE HYDROCHLORIDE
     Indication: TYPE 2 DIABETES MELLITUS
     Dosage: AFTER STOPPING BYETTA
     Route: 048
  24. METFORMIN [Concomitant]
     Active Substance: METFORMIN HYDROCHLORIDE
  25. BABY ASPIRIN [Concomitant]
     Active Substance: ASPIRIN
  26. RANEXA [Concomitant]
     Active Substance: RANOLAZINE

REACTIONS (23)
  - Chills [Unknown]
  - Glycosylated haemoglobin increased [Unknown]
  - Lung neoplasm malignant [Recovered/Resolved]
  - Feeling abnormal [Unknown]
  - Tremor [Unknown]
  - Nausea [Recovered/Resolved]
  - Weight decreased [Unknown]
  - Injection site bruising [Unknown]
  - Paraesthesia [Not Recovered/Not Resolved]
  - Diarrhoea [Recovered/Resolved]
  - Injection site swelling [Unknown]
  - Injection site nodule [Unknown]
  - Flank pain [Recovered/Resolved]
  - Renal pain [Recovered/Resolved]
  - Weight increased [Unknown]
  - Product quality issue [Unknown]
  - Blood glucose decreased [Unknown]
  - Injection site pain [Unknown]
  - Fibromyalgia [Not Recovered/Not Resolved]
  - Decreased appetite [Unknown]
  - Malaise [Recovered/Resolved]
  - Drug ineffective [Unknown]
  - Pain in extremity [Unknown]

NARRATIVE: CASE EVENT DATE: 20120529
